FAERS Safety Report 6840091-1 (Version None)
Quarter: 2010Q3

REPORT INFORMATION
  Report Type: 
  Country: None (occurrence: None)
  Receive Date: 20100713
  Receipt Date: 20100713
  Transmission Date: 20110219
  Serious: Yes (Other)
  Sender: FDA-Public Use
  Company Number: None

PATIENT
  Age: 68 Year
  Sex: Male
  Weight: 75.7507 kg

DRUGS (1)
  1. CIPROFLOXACIN [Suspect]
     Indication: INFECTION
     Dosage: 500 MG 1 TWICE A DAY
     Dates: start: 20100608, end: 20100611

REACTIONS (7)
  - ABDOMINAL DISCOMFORT [None]
  - DIZZINESS [None]
  - MALAISE [None]
  - MUSCLE SPASMS [None]
  - OEDEMA PERIPHERAL [None]
  - SYNCOPE [None]
  - TENDERNESS [None]
